FAERS Safety Report 6397974-9 (Version None)
Quarter: 2009Q4

REPORT INFORMATION
  Report Type: 
  Country: None (occurrence: None)
  Receive Date: 20091013
  Receipt Date: 20091001
  Transmission Date: 20100525
  Serious: Yes (Other)
  Sender: FDA-Public Use
  Company Number: US-JNJFOC-20091000985

PATIENT
  Age: 58 Year
  Sex: Male
  Weight: 76.66 kg

DRUGS (5)
  1. REMICADE [Suspect]
     Route: 042
     Dates: start: 20050811, end: 20071001
  2. REMICADE [Suspect]
     Route: 042
     Dates: start: 20050811, end: 20071001
  3. REMICADE [Suspect]
     Route: 042
     Dates: start: 20050811, end: 20071001
  4. REMICADE [Suspect]
     Route: 042
     Dates: start: 20050811, end: 20071001
  5. REMICADE [Suspect]
     Indication: CROHN'S DISEASE
     Route: 042
     Dates: start: 20050811, end: 20071001

REACTIONS (1)
  - NEOPLASM MALIGNANT [None]
